FAERS Safety Report 5157760-4 (Version None)
Quarter: 2006Q4

REPORT INFORMATION
  Report Type: 
  Country: None (occurrence: None)
  Receive Date: 20061115
  Receipt Date: 20061030
  Transmission Date: 20070319
  Serious: Yes (Hospitalization)
  Sender: FDA-Public Use
  Company Number: 2006JP003939

PATIENT
  Sex: Female
  Weight: 52 kg

DRUGS (6)
  1. PROGRAF [Suspect]
     Indication: RENAL TRANSPLANT
     Dosage: 3 MG, BID, OAL
     Route: 048
     Dates: start: 20041122, end: 20050411
  2. CELLCEPT [Concomitant]
  3. MEDROL [Concomitant]
  4. SIMULECT [Concomitant]
  5. CONIEL                (BENIDIPINE HYDROCHLORIDE) [Concomitant]
  6. ALLOPURINOL [Concomitant]

REACTIONS (10)
  - BLOOD CALCIUM INCREASED [None]
  - COMPLICATIONS OF TRANSPLANTED KIDNEY [None]
  - GAMMA-GLUTAMYLTRANSFERASE INCREASED [None]
  - LYMPHADENOPATHY [None]
  - LYMPHOMA [None]
  - LYMPHOPROLIFERATIVE DISORDER [None]
  - METASTASES TO BONE [None]
  - METASTASES TO LIVER [None]
  - RENAL IMPAIRMENT [None]
  - SPLENECTOMY [None]
